FAERS Safety Report 14300945 (Version 1)
Quarter: 2017Q4

REPORT INFORMATION
  Report Type: Spontaneous
  Country: US (occurrence: US)
  Receive Date: 20171218
  Receipt Date: 20171218
  Transmission Date: 20180321
  Serious: Yes (Other)
  Sender: FDA-Public Use
  Company Number: None

PATIENT
  Age: 83 Year
  Sex: Female

DRUGS (1)
  1. CAPECITABINE 500MG [Suspect]
     Active Substance: CAPECITABINE
     Indication: COLON CANCER
     Dosage: DOSE AMOUNT - 1500 MG AM AND 1000MG QPM
     Route: 048
     Dates: start: 20171122, end: 20171208

REACTIONS (6)
  - Diarrhoea [None]
  - Asthenia [None]
  - Oropharyngeal pain [None]
  - Aphonia [None]
  - Feeding disorder [None]
  - Vomiting [None]

NARRATIVE: CASE EVENT DATE: 20171208
